FAERS Safety Report 9353300 (Version 1)
Quarter: 2013Q2

REPORT INFORMATION
  Report Type: Spontaneous
  Country: US (occurrence: US)
  Receive Date: 20130618
  Receipt Date: 20130618
  Transmission Date: 20140414
  Serious: Yes (Hospitalization)
  Sender: FDA-Public Use
  Company Number: US-AMGEN-USASP2013042178

PATIENT
  Age: 58 Year
  Sex: Female

DRUGS (2)
  1. ENBREL [Suspect]
     Indication: RHEUMATOID ARTHRITIS
     Dosage: 50 MG, QWK
     Dates: start: 20090417
  2. METHOTREXATE [Concomitant]
     Dosage: 15 MG, QWK
     Route: 048
     Dates: start: 2008

REACTIONS (5)
  - Joint range of motion decreased [Not Recovered/Not Resolved]
  - Bursa disorder [Recovered/Resolved]
  - Nodule [Recovered/Resolved]
  - Rotator cuff syndrome [Recovered/Resolved]
  - Pain in extremity [Not Recovered/Not Resolved]
